FAERS Safety Report 8034723 (Version 4)
Quarter: 2013Q1

REPORT INFORMATION
  Report Type: Report from Study
  Country: JP (occurrence: JP)
  Receive Date: 20110714
  Receipt Date: 20130306
  Transmission Date: 20140127
  Serious: Yes (Other)
  Sender: FDA-Public Use
  Company Number: PHHY2011JP60867

PATIENT
  Age: 54 Year
  Sex: Female

DRUGS (7)
  1. AMN107 [Suspect]
     Indication: CHRONIC MYELOID LEUKAEMIA
     Dosage: 800 MG, DAILY
     Route: 048
     Dates: start: 20110121
  2. DIOVAN [Concomitant]
     Indication: HYPERTENSION
     Dosage: 80 MG, UNK
     Route: 048
     Dates: start: 20110121, end: 20110414
  3. DIOVAN [Concomitant]
     Dosage: 40 MG, UNK
     Route: 048
  4. LENDORMIN [Concomitant]
     Indication: INSOMNIA
     Dosage: 0.25 MG, UNK
     Route: 048
     Dates: start: 20110121
  5. CELESTAMINE [Concomitant]
     Dosage: 2 DF,
     Route: 048
     Dates: start: 20110203
  6. CONIEL [Concomitant]
     Indication: HYPERURICAEMIA
     Dosage: 2 MG, DAILY
     Route: 048
     Dates: start: 20110620
  7. PROMAC [Concomitant]
     Dosage: 150 MG, UNK
     Route: 048
     Dates: start: 20120301

REACTIONS (2)
  - Gamma-glutamyltransferase increased [Not Recovered/Not Resolved]
  - Electrocardiogram QT prolonged [Unknown]
